FAERS Safety Report 18128936 (Version 3)
Quarter: 2020Q4

REPORT INFORMATION
  Report Type: Spontaneous
  Country: US (occurrence: US)
  Receive Date: 20200810
  Receipt Date: 20201021
  Transmission Date: 20210113
  Serious: No
  Sender: FDA-Public Use
  Company Number: US-PFIZER INC-2020301302

PATIENT
  Age: 43 Year
  Sex: Female

DRUGS (2)
  1. INLYTA [Suspect]
     Active Substance: AXITINIB
     Dosage: 3 MG, DAILY (TAKE 1 TABLET IN THE MORNING AND 2 TABLETS IN THE EVENING)
     Route: 048
     Dates: start: 2016
  2. INLYTA [Suspect]
     Active Substance: AXITINIB
     Dosage: 1 MG, 2X/DAY (ONE TABLET TWICE A DAY)
     Route: 048

REACTIONS (5)
  - Pain in extremity [Recovering/Resolving]
  - Stomatitis [Recovering/Resolving]
  - Off label use [Unknown]
  - Speech disorder [Recovering/Resolving]
  - Glossitis [Unknown]

NARRATIVE: CASE EVENT DATE: 2016
